FAERS Safety Report 25235308 (Version 1)
Quarter: 2025Q2

REPORT INFORMATION
  Report Type: Spontaneous
  Country: US (occurrence: None)
  Receive Date: 20250423
  Receipt Date: 20250423
  Transmission Date: 20250716
  Serious: Yes (Disabling)
  Sender: FDA-CTU
  Company Number: None

PATIENT
  Age: 82 Year
  Sex: Female
  Weight: 60.3 kg

DRUGS (20)
  1. SPIRIVA RESPIMAT [Suspect]
     Active Substance: TIOTROPIUM BROMIDE
     Indication: Chronic obstructive pulmonary disease
     Dosage: OTHER QUANTITY : 2 PUFF(S);?FREQUENCY : DAILY;?
     Route: 055
     Dates: start: 20250107, end: 20250421
  2. ALENDRONATE [Concomitant]
     Active Substance: ALENDRONATE SODIUM
  3. AZELASTINE [Concomitant]
     Active Substance: AZELASTINE
  4. BENZONATATE [Concomitant]
     Active Substance: BENZONATATE
  5. BRIMONIDINE TARTRATE\TIMOLOL MALEATE [Concomitant]
     Active Substance: BRIMONIDINE TARTRATE\TIMOLOL MALEATE
  6. BRINZOLAMIDE [Concomitant]
     Active Substance: BRINZOLAMIDE
  7. DOFETILIDE [Concomitant]
     Active Substance: DOFETILIDE
  8. DORZOLAMIDE [Concomitant]
     Active Substance: DORZOLAMIDE
  9. EZETIMIBE [Concomitant]
     Active Substance: EZETIMIBE
  10. FLUTICASONE PROPIONATE\SALMETEROL XINAFOATE [Concomitant]
     Active Substance: FLUTICASONE PROPIONATE\SALMETEROL XINAFOATE
  11. LEVOTHYROXINE [Concomitant]
     Active Substance: LEVOTHYROXINE
  12. LIOTHYRONINE [Concomitant]
     Active Substance: LIOTHYRONINE
  13. LUMIGAN [Concomitant]
     Active Substance: BIMATOPROST
  14. MONTELUKAST [Concomitant]
     Active Substance: MONTELUKAST
  15. ASPIRIN [Concomitant]
     Active Substance: ASPIRIN
  16. COENZYME Q10 [Concomitant]
     Active Substance: DIETARY SUPPLEMENT\UBIDECARENONE
  17. magnesium tarate [Concomitant]
  18. VITAMIN B12 [Concomitant]
     Active Substance: CYANOCOBALAMIN
  19. centrum senior vitamin [Concomitant]
  20. vitaimin d-3 [Concomitant]

REACTIONS (5)
  - Dry mouth [None]
  - Speech disorder [None]
  - Dysphagia [None]
  - Middle insomnia [None]
  - Atrial tachycardia [None]

NARRATIVE: CASE EVENT DATE: 20250222
